FAERS Safety Report 8814179 (Version 1)
Quarter: 2012Q4

REPORT INFORMATION
  Report Type: Report from Study
  Country: CA (occurrence: CA)
  Receive Date: 20120928
  Receipt Date: 20120928
  Transmission Date: 20130627
  Serious: Yes (Other)
  Sender: FDA-Public Use
  Company Number: CA-JNJFOC-20120908624

PATIENT
  Age: 47 Year
  Sex: Female
  Weight: 130 kg

DRUGS (8)
  1. REMICADE [Suspect]
     Indication: CROHN^S DISEASE
     Route: 042
     Dates: start: 20060101
  2. IMURAN [Concomitant]
     Route: 065
  3. PANTOLOC [Concomitant]
     Route: 065
  4. NITROFURANTOIN [Concomitant]
     Route: 065
  5. IRON [Concomitant]
     Route: 065
  6. METAMUCIL [Concomitant]
     Route: 065
  7. IMODIUM [Concomitant]
     Route: 065
  8. ALL OTHER THERAPEUTICS [Concomitant]
     Route: 065

REACTIONS (2)
  - Systemic lupus erythematosus [Not Recovered/Not Resolved]
  - Migraine [Recovered/Resolved]
